FAERS Safety Report 18193840 (Version 1)
Quarter: 2020Q3

REPORT INFORMATION
  Report Type: Spontaneous
  Country: US (occurrence: US)
  Receive Date: 20200825
  Receipt Date: 20200825
  Transmission Date: 20201103
  Serious: Yes (Other)
  Sender: FDA-Public Use
  Company Number: US-INSUD PHARMA-2008US00189

PATIENT

DRUGS (1)
  1. TESTOSTERONE. [Suspect]
     Active Substance: TESTOSTERONE
     Indication: GENDER REASSIGNMENT THERAPY
     Dosage: 32 MG WEEKLY IM TESTOSTERONE CYPIONATE
     Route: 030

REACTIONS (9)
  - Hepatic mass [Recovering/Resolving]
  - Nausea [Unknown]
  - Early satiety [Unknown]
  - Night sweats [Unknown]
  - Abnormal loss of weight [Unknown]
  - Off label use [Unknown]
  - Hepatocellular carcinoma [Recovering/Resolving]
  - Abdominal pain upper [Unknown]
  - Abdominal tenderness [Unknown]
